FAERS Safety Report 9508737 (Version 1)
Quarter: 2013Q1

REPORT INFORMATION
  Report Type: Spontaneous
  Country: US (occurrence: None)
  Receive Date: 20130305
  Receipt Date: 20130305
  Transmission Date: 20140127
  Serious: Yes (Other)
  Sender: FDA-Public Use
  Company Number: 163-21880-12081827

PATIENT
  Age: 68 Year
  Sex: Female
  Weight: 98.88 kg

DRUGS (7)
  1. REVLIMID (LENALIDOMIDE) (25 MILLIGRAM, CAPSULES) [Suspect]
     Indication: PLASMA CELL MYELOMA
     Dosage: 21 IN 28 D
     Route: 048
     Dates: start: 20120515
  2. METOPROLOL [Concomitant]
  3. CLONIDINE [Concomitant]
  4. ALBUTEROL [Concomitant]
  5. PROZAC [Concomitant]
  6. PEPCID [Concomitant]
  7. LIDODERM [Concomitant]

REACTIONS (4)
  - International normalised ratio decreased [None]
  - Dehydration [None]
  - Diarrhoea [None]
  - Dyspnoea [None]
